FAERS Safety Report 9184108 (Version 1)
Quarter: 2013Q1

REPORT INFORMATION
  Report Type: Spontaneous
  Country: US (occurrence: US)
  Receive Date: 20130322
  Receipt Date: 20130322
  Transmission Date: 20140127
  Serious: No
  Sender: FDA-Public Use
  Company Number: US-BRISTOL-MYERS SQUIBB COMPANY-17319690

PATIENT
  Age: 75 Year
  Sex: Male
  Weight: 103.4 kg

DRUGS (6)
  1. ERBITUX [Suspect]
     Indication: SKIN CANCER
     Dosage: 3 TREATMENTS
     Dates: start: 20130115
  2. BENADRYL [Suspect]
  3. DICLOFENAC [Concomitant]
     Indication: ARTHRITIS
     Route: 048
  4. LISINOPRIL [Concomitant]
     Indication: BLOOD PRESSURE
     Route: 048
  5. ASPIRIN [Concomitant]
  6. VITAMIN [Concomitant]

REACTIONS (3)
  - Rash [Unknown]
  - Rash macular [Not Recovered/Not Resolved]
  - Pruritus [Recovered/Resolved]
